FAERS Safety Report 9586137 (Version 1)
Quarter: 2013Q4

REPORT INFORMATION
  Report Type: Spontaneous
  Country: FR (occurrence: FR)
  Receive Date: 20131003
  Receipt Date: 20131003
  Transmission Date: 20140711
  Serious: Yes (Death, Hospitalization)
  Sender: FDA-Public Use
  Company Number: FR-ELI_LILLY_AND_COMPANY-FR201309007662

PATIENT
  Age: 60 Year
  Sex: Male

DRUGS (7)
  1. PROZAC [Suspect]
     Dosage: 60 MG, QD
     Route: 048
  2. COUMADINE [Suspect]
     Dosage: 7 MG, QD
     Route: 048
     Dates: start: 2011
  3. KARDEGIC [Suspect]
     Dosage: 75 MG, QD
     Route: 048
     Dates: start: 2011
  4. CRESTOR [Concomitant]
  5. CANDESARTAN [Concomitant]
  6. NOCTAMIDE [Concomitant]
  7. KETODERM [Concomitant]

REACTIONS (2)
  - Haemorrhage intracranial [Fatal]
  - Cerebral haematoma [Fatal]
